FAERS Safety Report 17433657 (Version 2)
Quarter: 2020Q4

REPORT INFORMATION
  Report Type: Spontaneous
  Country: US (occurrence: US)
  Receive Date: 20200219
  Receipt Date: 20201009
  Transmission Date: 20210113
  Serious: Yes (Hospitalization)
  Sender: FDA-Public Use
  Company Number: US-TEVA-2020-US-1185835

PATIENT
  Age: 67 Year
  Sex: Male

DRUGS (14)
  1. ATIVAN [Concomitant]
     Active Substance: LORAZEPAM
     Dates: end: 20190317
  2. 5-FLUOROURACIL [Suspect]
     Active Substance: FLUOROURACIL
     Route: 042
     Dates: start: 20171215, end: 20181231
  3. XARELTO [Concomitant]
     Active Substance: RIVAROXABAN
     Route: 065
     Dates: end: 20190317
  4. PRISTIQ EXTENDED-RELEASE [Concomitant]
     Active Substance: DESVENLAFAXINE SUCCINATE
     Dates: end: 20190317
  5. VITAMIN B12 [Concomitant]
     Active Substance: CYANOCOBALAMIN
     Route: 065
  6. 5-FLUOROURACIL [Suspect]
     Active Substance: FLUOROURACIL
     Indication: COLORECTAL CANCER METASTATIC
     Dosage: DAILY DOSE:956 MG, Q2WEEKS
     Route: 040
     Dates: start: 20171215, end: 20180105
  7. ALDACTONE [Concomitant]
     Active Substance: SPIRONOLACTONE
     Route: 065
     Dates: end: 20190318
  8. LEUCOVORIN. [Suspect]
     Active Substance: LEUCOVORIN
     Indication: COLORECTAL CANCER METASTATIC
     Route: 042
     Dates: start: 20171215, end: 20181231
  9. IRINOTECAN [Suspect]
     Active Substance: IRINOTECAN
     Indication: COLORECTAL CANCER METASTATIC
     Route: 042
     Dates: start: 20171215, end: 20181231
  10. BEVACIZUMAB. [Suspect]
     Active Substance: BEVACIZUMAB
     Indication: COLORECTAL CANCER METASTATIC
     Route: 042
     Dates: start: 20171215, end: 20181231
  11. BBI608 [Suspect]
     Active Substance: NAPABUCASIN
     Indication: COLORECTAL CANCER METASTATIC
     Dosage: 480 MILLIGRAM DAILY;
     Route: 048
     Dates: start: 20171213
  12. BBI608 [Suspect]
     Active Substance: NAPABUCASIN
     Dosage: 160 MILLIGRAM DAILY;
     Route: 048
     Dates: start: 20190318
  13. SYNTHROID [Concomitant]
     Active Substance: LEVOTHYROXINE SODIUM
     Route: 065
     Dates: end: 20190318
  14. PRILOSEC [Concomitant]
     Active Substance: OMEPRAZOLE MAGNESIUM

REACTIONS (7)
  - Epistaxis [Unknown]
  - Acute kidney injury [Recovered/Resolved]
  - Anaemia [Unknown]
  - Dyspnoea [Recovered/Resolved]
  - Presyncope [Unknown]
  - Vomiting [Unknown]
  - Nausea [Unknown]

NARRATIVE: CASE EVENT DATE: 20190312
